FAERS Safety Report 4464835-1 (Version None)
Quarter: 2004Q4

REPORT INFORMATION
  Report Type: 
  Country: None (occurrence: None)
  Receive Date: 20041004
  Receipt Date: 20031022
  Transmission Date: 20050328
  Serious: No
  Sender: FDA-Public Use
  Company Number: 352030

PATIENT
  Age: 65 Year
  Sex: Male

DRUGS (5)
  1. COREG [Suspect]
     Indication: HYPERTENSION
     Dosage: 3.125MG THREE TIMES PER DAY
     Route: 048
     Dates: start: 20030101
  2. HYZAAR [Concomitant]
  3. VERAPAMIL [Concomitant]
  4. LIPITOR [Concomitant]
  5. INSULIN [Concomitant]

REACTIONS (1)
  - RASH [None]
